FAERS Safety Report 14231743 (Version 1)
Quarter: 2017Q4

REPORT INFORMATION
  Report Type: Not Available
  Country: TR (occurrence: TR)
  Receive Date: 20171128
  Receipt Date: 20171128
  Transmission Date: 20180321
  Serious: Yes (Hospitalization)
  Sender: FDA-Public Use
  Company Number: TR-ANIPHARMA-2017-TR-000041

PATIENT
  Age: 38 Year
  Sex: Female

DRUGS (2)
  1. LITHIUM CARBONATE (NON-SPECIFIC) [Suspect]
     Active Substance: LITHIUM
     Dosage: 1200 MG DAILY
     Dates: start: 201110, end: 201202
  2. ARIPIPRAZOLE. [Suspect]
     Active Substance: ARIPIPRAZOLE
     Dosage: 30 MG DAILY
     Dates: start: 201203, end: 201606

REACTIONS (1)
  - Tardive dyskinesia [Recovered/Resolved]

NARRATIVE: CASE EVENT DATE: 201606
